FAERS Safety Report 6570230-1 (Version None)
Quarter: 2010Q1

REPORT INFORMATION
  Report Type: 
  Country: None (occurrence: None)
  Receive Date: 20100202
  Receipt Date: 20100202
  Transmission Date: 20100710
  Serious: No
  Sender: FDA-Public Use
  Company Number: None

PATIENT
  Sex: Male
  Weight: 63.5036 kg

DRUGS (1)
  1. TYLENOL [Suspect]
     Dosage: 2 EACH OF 4 DAYS

REACTIONS (3)
  - DIARRHOEA [None]
  - GASTROINTESTINAL DISORDER [None]
  - NAUSEA [None]
